FAERS Safety Report 6507265-0 (Version None)
Quarter: 2009Q4

REPORT INFORMATION
  Report Type: 
  Country: None (occurrence: None)
  Receive Date: 20091221
  Receipt Date: 20091215
  Transmission Date: 20100525
  Serious: Yes (Death, Hospitalization, Disabling, Other)
  Sender: FDA-Public Use
  Company Number: PHEH2007US12177

PATIENT
  Sex: Male
  Weight: 113.38 kg

DRUGS (44)
  1. ZOMETA [Suspect]
     Indication: MULTIPLE MYELOMA
     Dosage: 4 MG, QMO
     Route: 042
  2. ZOMETA [Suspect]
     Dosage: UNK
     Dates: end: 20080101
  3. ANTINEOPLASTIC AGENTS [Concomitant]
     Dosage: UNK
     Dates: end: 20060101
  4. AMOXICILLIN [Concomitant]
     Dosage: 500 MG, UNK
     Dates: start: 20071101
  5. THALIDOMIDE [Concomitant]
     Dosage: 200 MG, QD
     Dates: start: 20050101
  6. VICODIN ES [Concomitant]
     Dosage: UNK
     Dates: start: 20070101
  7. DEXAMETHASONE TAB [Concomitant]
     Dosage: 40 MG, UNK
     Route: 048
     Dates: start: 20050101
  8. LOVENOX [Concomitant]
     Dosage: 40 MG, QD
  9. CHLORHEXIDINE GLUCONATE [Concomitant]
     Dosage: 0.12%
     Dates: start: 20061214
  10. PEN-VEE K [Concomitant]
     Dosage: 500 MG
     Dates: start: 20000401
  11. VICODIN [Concomitant]
     Dosage: UNK
     Dates: start: 20061214
  12. HYDROCODONE [Concomitant]
  13. IBUPROFEN [Concomitant]
  14. HERBAL EXTRACTS NOS [Concomitant]
  15. WARFARIN SODIUM [Concomitant]
     Dosage: UNK
     Dates: start: 20060801
  16. AMICAR [Concomitant]
     Dosage: UNK
     Dates: start: 20070101
  17. HYDROCODONE BITARTRATE AND ACETAMINOPHEN [Concomitant]
  18. METRONIDAZOLE [Concomitant]
     Dosage: UNK
     Dates: start: 20070901
  19. TYLENOL (CAPLET) [Concomitant]
     Route: 048
  20. LEVAQUIN [Concomitant]
     Route: 042
  21. VELCADE [Concomitant]
     Dosage: UNK DOSE TWICE A WEEK
     Route: 042
  22. MULTI-VITAMINS [Concomitant]
  23. AMPICILLIN [Concomitant]
  24. PEPCID [Concomitant]
  25. REGLAN [Concomitant]
  26. GENTAMYCIN-MP [Concomitant]
  27. DECADRON                                /CAN/ [Concomitant]
     Dosage: UNK
  28. COUMADIN [Concomitant]
     Dosage: 1 MGM / DAILY
  29. REVLIMID [Concomitant]
     Dosage: UNK
  30. REVLIMID [Concomitant]
     Dosage: 25 MG / DAILY FOR 3 WEEKS
  31. PREDNISONE [Concomitant]
     Dosage: UNK
  32. PENICILLIN ^GRUNENTHAL^ [Concomitant]
     Dosage: UNK
  33. FLAGYL [Concomitant]
     Dosage: UNK
  34. ADVAIR DISKUS 100/50 [Concomitant]
     Dosage: UNK / 1 PUFF DAILY B I D
  35. AUGMENTIN                               /SCH/ [Concomitant]
     Dosage: UNK
  36. MOTRIN [Concomitant]
     Dosage: UNK
     Dates: start: 20040101
  37. FLEXERIL [Concomitant]
     Dosage: UNK
     Dates: start: 20040101
  38. LORTAB [Concomitant]
     Indication: PAIN
  39. DURAGESIC-100 [Concomitant]
  40. ALKERAN [Concomitant]
  41. ALLOPURINOL [Concomitant]
  42. DILAUDID [Concomitant]
     Indication: PAIN
  43. PHENTOLAMINE MESYLATE [Concomitant]
  44. BABY ASPIRIN [Concomitant]
     Indication: PROPHYLAXIS

REACTIONS (82)
  - ABSCESS JAW [None]
  - ANAEMIA [None]
  - ANHEDONIA [None]
  - ANXIETY [None]
  - AORTIC ARTERIOSCLEROSIS [None]
  - ARTHRALGIA [None]
  - ASPIRATION [None]
  - ATELECTASIS [None]
  - BACK DISORDER [None]
  - BACK PAIN [None]
  - BENIGN PROSTATIC HYPERPLASIA [None]
  - BONE DISORDER [None]
  - BONE LESION [None]
  - CALCULUS URETHRAL [None]
  - CARDIOMEGALY [None]
  - CELLULITIS [None]
  - CHEST PAIN [None]
  - CHEST X-RAY ABNORMAL [None]
  - CORONARY ARTERY DISEASE [None]
  - COUGH [None]
  - DEFORMITY [None]
  - DENTAL ALVEOLAR ANOMALY [None]
  - DENTAL CARE [None]
  - DISCOMFORT [None]
  - EMOTIONAL DISTRESS [None]
  - EMPHYSEMA [None]
  - FALL [None]
  - GAMMOPATHY [None]
  - GINGIVAL ULCERATION [None]
  - HAEMATURIA [None]
  - HAEMOPTYSIS [None]
  - HIP ARTHROPLASTY [None]
  - HYDRONEPHROSIS [None]
  - HYPOPHAGIA [None]
  - HYPOTENSION [None]
  - IMPAIRED HEALING [None]
  - INJURY [None]
  - INTERVERTEBRAL DISC PROTRUSION [None]
  - LEFT ATRIAL DILATATION [None]
  - LIFE EXPECTANCY SHORTENED [None]
  - LITHOTRIPSY [None]
  - LOOSE TOOTH [None]
  - LUNG DISORDER [None]
  - LYMPHADENOPATHY [None]
  - METASTASES TO BONE [None]
  - MULTIPLE MYELOMA [None]
  - MUSCLE INJURY [None]
  - MUSCLE SPASMS [None]
  - MYOCARDIAL INFARCTION [None]
  - NEPHROLITHIASIS [None]
  - NEUROPATHY PERIPHERAL [None]
  - NON-SMALL CELL LUNG CANCER METASTATIC [None]
  - OEDEMA PERIPHERAL [None]
  - ORAL CAVITY FISTULA [None]
  - OSTEOARTHRITIS [None]
  - OSTEONECROSIS [None]
  - OSTEOPENIA [None]
  - PAIN [None]
  - PAPILLOMA [None]
  - PERIODONTAL DISEASE [None]
  - PERIODONTITIS [None]
  - PNEUMOCONIOSIS [None]
  - PNEUMONIA [None]
  - PRIMARY SEQUESTRUM [None]
  - PROSTATE EXAMINATION ABNORMAL [None]
  - PROSTATIC INTRAEPITHELIAL NEOPLASIA [None]
  - PULMONARY HAEMORRHAGE [None]
  - PYREXIA [None]
  - RASH [None]
  - RHINORRHOEA [None]
  - SINUS TACHYCARDIA [None]
  - SPINAL COMPRESSION FRACTURE [None]
  - SPINAL OSTEOARTHRITIS [None]
  - SWELLING FACE [None]
  - TOOTH EXTRACTION [None]
  - TOOTH REPAIR [None]
  - TOTAL LUNG CAPACITY DECREASED [None]
  - TUMOUR INVASION [None]
  - UPPER RESPIRATORY TRACT INFECTION [None]
  - URETERAL STENT INSERTION [None]
  - VENTRICULAR HYPERTROPHY [None]
  - WEIGHT DECREASED [None]
